FAERS Safety Report 10267780 (Version 1)
Quarter: 2014Q2

REPORT INFORMATION
  Report Type: Spontaneous
  Country: US (occurrence: US)
  Receive Date: 20140630
  Receipt Date: 20140630
  Transmission Date: 20141212
  Serious: Yes (Other)
  Sender: FDA-Public Use
  Company Number: US-BAYER-2014-094283

PATIENT
  Age: 56 Year
  Sex: Female
  Weight: 63.04 kg

DRUGS (11)
  1. BETASERON [Suspect]
     Indication: PRODUCT USED FOR UNKNOWN INDICATION
  2. REBIF [Suspect]
     Indication: PRODUCT USED FOR UNKNOWN INDICATION
  3. AMPYRA [Suspect]
     Indication: GAIT DISTURBANCE
     Dosage: 10 MG, BID
     Route: 048
     Dates: start: 20140523
  4. CLONAZEPAM [Concomitant]
     Dosage: 2.5 MG, UNK
  5. LISINOPRIL [Concomitant]
     Dosage: 10 MG, UNK
  6. METOPROLOL [Concomitant]
     Dosage: 50 MG, UNK
  7. NEURONTIN [Concomitant]
     Dosage: 400 MG, UNK
  8. NORVASC [Concomitant]
     Dosage: 10 MG, UNK
  9. NUVIGIL [Concomitant]
     Dosage: 100 MG, UNK
  10. SIMVASTATIN [Concomitant]
     Dosage: 40 MG, UNK
  11. ZOLOFT [Concomitant]
     Dosage: 50 MG, UNK

REACTIONS (5)
  - Herpes zoster [Unknown]
  - Injection site cellulitis [Unknown]
  - Pain in extremity [Unknown]
  - Skin wrinkling [Unknown]
  - Paraesthesia [Not Recovered/Not Resolved]
